FAERS Safety Report 15175627 (Version 1)
Quarter: 2018Q3

REPORT INFORMATION
  Report Type: Spontaneous
  Country: US (occurrence: US)
  Receive Date: 20180720
  Receipt Date: 20180720
  Transmission Date: 20181010
  Serious: No
  Sender: FDA-Public Use
  Company Number: US-JNJFOC-20180635443

PATIENT

DRUGS (8)
  1. CETIRIZINE [Concomitant]
     Active Substance: CETIRIZINE HYDROCHLORIDE
  2. DEXAMETHASONE. [Concomitant]
     Active Substance: DEXAMETHASONE
     Indication: PLASMA CELL MYELOMA
     Route: 042
  3. VELCADE [Concomitant]
     Active Substance: BORTEZOMIB
  4. SINGULAIR [Concomitant]
     Active Substance: MONTELUKAST SODIUM
  5. TYLENOL [Concomitant]
     Active Substance: ACETAMINOPHEN
  6. DIPHENHYDRAMINE. [Concomitant]
     Active Substance: DIPHENHYDRAMINE
  7. FAMOTIDINE. [Concomitant]
     Active Substance: FAMOTIDINE
  8. DARZALEX [Suspect]
     Active Substance: DARATUMUMAB
     Indication: PRODUCT USED FOR UNKNOWN INDICATION
     Route: 042

REACTIONS (5)
  - Vomiting [Unknown]
  - Infusion related reaction [Unknown]
  - Flushing [Unknown]
  - Nausea [Unknown]
  - Wheezing [Unknown]
